FAERS Safety Report 13225799 (Version 1)
Quarter: 2017Q1

REPORT INFORMATION
  Report Type: Spontaneous
  Country: HR (occurrence: HR)
  Receive Date: 20170213
  Receipt Date: 20170213
  Transmission Date: 20170428
  Serious: Yes (Other)
  Sender: FDA-Public Use
  Company Number: HR-TEVA-737866ACC

PATIENT
  Sex: Male
  Weight: 95 kg

DRUGS (4)
  1. TAMOSIN [Concomitant]
     Route: 048
  2. TRITAZIDE [Concomitant]
     Active Substance: HYDROCHLOROTHIAZIDE\RAMIPRIL
     Route: 048
  3. AMLOPIN [Concomitant]
     Active Substance: AMLODIPINE BESYLATE
     Route: 048
  4. UROTRIM [Suspect]
     Active Substance: TRIMETHOPRIM
     Indication: BENIGN PROSTATIC HYPERPLASIA
     Dosage: 5 MILLIGRAM DAILY;
     Route: 048
     Dates: start: 201603

REACTIONS (2)
  - Oral candidiasis [Not Recovered/Not Resolved]
  - Dry mouth [Not Recovered/Not Resolved]

NARRATIVE: CASE EVENT DATE: 201603
